FAERS Safety Report 6107467-1 (Version None)
Quarter: 2009Q1

REPORT INFORMATION
  Report Type: 
  Country: None (occurrence: None)
  Receive Date: 20090309
  Receipt Date: 20090213
  Transmission Date: 20090719
  Serious: Yes (Hospitalization)
  Sender: FDA-Public Use
  Company Number: US-PFIZER INC-2009170793

PATIENT
  Sex: Female
  Weight: 55.8 kg

DRUGS (12)
  1. BLINDED *PLACEBO [Suspect]
     Indication: BLADDER TRANSITIONAL CELL CARCINOMA
     Dosage: 12.5 MG, 3X/DAY, EVERY 4 WEEKS
     Route: 048
     Dates: start: 20081028, end: 20090213
  2. BLINDED SUNITINIB MALATE [Suspect]
     Indication: BLADDER TRANSITIONAL CELL CARCINOMA
     Dosage: 12.5 MG, 3X/DAY, EVERY 4 WEEKS
     Route: 048
     Dates: start: 20081028, end: 20090213
  3. ASACOL [Concomitant]
  4. CALCIUM [Concomitant]
  5. CIPROFLOXACIN [Concomitant]
  6. FOLIC ACID [Concomitant]
  7. LESCOL [Concomitant]
  8. LOPRESSOR [Concomitant]
  9. MAGNESIUM SULFATE [Concomitant]
  10. ASCORBIC ACID [Concomitant]
  11. VITAMIN E [Concomitant]
  12. ZOMETA [Concomitant]

REACTIONS (1)
  - DIVERTICULITIS [None]
